FAERS Safety Report 6490344-4 (Version None)
Quarter: 2009Q4

REPORT INFORMATION
  Report Type: 
  Country: None (occurrence: None)
  Receive Date: 20091124
  Receipt Date: 20090206
  Transmission Date: 20100525
  Serious: Yes (Other)
  Sender: FDA-Public Use
  Company Number: SPV1-2009-00201

PATIENT

DRUGS (1)
  1. CARBATROL [Suspect]

REACTIONS (1)
  - BLOOD SODIUM DECREASED [None]
